FAERS Safety Report 7866606-2 (Version None)
Quarter: 2011Q4

REPORT INFORMATION
  Report Type: 
  Country: None (occurrence: None)
  Receive Date: 20111028
  Receipt Date: 20110713
  Transmission Date: 20120403
  Serious: No
  Sender: FDA-Public Use
  Company Number: US-GLAXOSMITHKLINE-A0936687A

PATIENT
  Sex: Female

DRUGS (4)
  1. COMBIVENT [Concomitant]
  2. DIOVAN [Concomitant]
  3. ADVAIR DISKUS 100/50 [Suspect]
     Indication: ASTHMA
     Route: 055
     Dates: start: 20050101, end: 20050101
  4. PREVACID [Concomitant]

REACTIONS (1)
  - ANXIETY [None]
